FAERS Safety Report 4509303-3 (Version None)
Quarter: 2004Q4

REPORT INFORMATION
  Report Type: 
  Country: None (occurrence: None)
  Receive Date: 20041123
  Receipt Date: 20041117
  Transmission Date: 20050328
  Serious: Yes (Other)
  Sender: FDA-Public Use
  Company Number: US-MERCK-0411USA03031

PATIENT
  Age: 83 Year
  Sex: Female

DRUGS (5)
  1. VIOXX [Suspect]
     Indication: ARTHRITIS
     Route: 048
     Dates: start: 20031201, end: 20040801
  2. ACCUPRIL [Concomitant]
     Route: 065
  3. SYNTHROID [Concomitant]
     Route: 065
  4. LIPITOR [Concomitant]
     Route: 065
  5. EVISTA [Concomitant]
     Route: 065

REACTIONS (2)
  - DUODENAL ULCER HAEMORRHAGE [None]
  - FALL [None]
